FAERS Safety Report 10215587 (Version 1)
Quarter: 2014Q2

REPORT INFORMATION
  Report Type: Spontaneous
  Country: US (occurrence: US)
  Receive Date: 20140604
  Receipt Date: 20140604
  Transmission Date: 20141212
  Serious: Yes (Hospitalization, Other)
  Sender: FDA-Public Use
  Company Number: US-009507513-1405USA015293

PATIENT
  Age: 21 Year
  Sex: Female

DRUGS (1)
  1. NUVARING [Suspect]
     Indication: CONTRACEPTION
     Dosage: 1 RING EVERY 21 DAYS
     Route: 067
     Dates: start: 201402, end: 201405

REACTIONS (3)
  - Neoplasm malignant [Unknown]
  - Loss of consciousness [Unknown]
  - Application site haemorrhage [Unknown]
